FAERS Safety Report 6992846-0 (Version None)
Quarter: 2010Q3

REPORT INFORMATION
  Report Type: 
  Country: None (occurrence: None)
  Receive Date: 20100917
  Receipt Date: 20100909
  Transmission Date: 20110219
  Serious: Yes (Hospitalization)
  Sender: FDA-Public Use
  Company Number: B0426243A

PATIENT
  Sex: Male
  Weight: 59 kg

DRUGS (1)
  1. GW786034 [Suspect]
     Indication: SARCOMA
     Route: 048
     Dates: start: 20060117, end: 20060404

REACTIONS (3)
  - ABDOMINAL PAIN [None]
  - DYSURIA [None]
  - PELVIC PAIN [None]
